FAERS Safety Report 7467309-9 (Version None)
Quarter: 2011Q2

REPORT INFORMATION
  Report Type: 
  Country: None (occurrence: None)
  Receive Date: 20110509
  Receipt Date: 20101206
  Transmission Date: 20111010
  Serious: Yes (Hospitalization)
  Sender: FDA-Public Use
  Company Number: US-ALEXION-A201001560

PATIENT
  Sex: Male

DRUGS (2)
  1. SOLIRIS [Suspect]
     Indication: PAROXYSMAL NOCTURNAL HAEMOGLOBINURIA
     Dosage: UNK
     Route: 042
  2. TYLENOL (CAPLET) [Suspect]
     Indication: HEADACHE

REACTIONS (3)
  - HEPATIC ENZYME INCREASED [None]
  - HEADACHE [None]
  - ABDOMINAL PAIN UPPER [None]
